FAERS Safety Report 6956911 (Version 9)
Quarter: 2013Q4

REPORT INFORMATION
  Report Type: Spontaneous
  Country: JP (occurrence: JP)
  Receive Date: 20090331
  Receipt Date: 20131221
  Transmission Date: 20140711
  Serious: Yes (Hospitalization)
  Sender: FDA-Public Use
  Company Number: PHHY2009JP10273

PATIENT
  Age: 71 Year
  Sex: Male
  Weight: 50 kg

DRUGS (4)
  1. TASIGNA [Suspect]
     Indication: CHRONIC MYELOID LEUKAEMIA
     Dosage: 800 MG, DAILY
     Route: 048
     Dates: start: 20090224, end: 20090316
  2. MUCOSTA [Concomitant]
     Dosage: 300 MG, UNK
     Route: 048
     Dates: start: 20090123
  3. OMEPRAL [Concomitant]
     Dosage: 20 MG, UNK
     Route: 048
     Dates: start: 20090110
  4. BARACLUDE [Concomitant]
     Dosage: 0.5 MG, UNK
     Route: 048
     Dates: start: 20081114

REACTIONS (11)
  - Chronic myeloid leukaemia [Not Recovered/Not Resolved]
  - Blast crisis in myelogenous leukaemia [Unknown]
  - Neutropenia [Not Recovered/Not Resolved]
  - Anaemia [Unknown]
  - Platelet count decreased [Not Recovered/Not Resolved]
  - General physical health deterioration [Recovering/Resolving]
  - White blood cell count decreased [Not Recovered/Not Resolved]
  - Eosinophil count decreased [Unknown]
  - Skin lesion [Unknown]
  - Renal impairment [Recovered/Resolved]
  - Hyperuricaemia [Recovered/Resolved]
